FAERS Safety Report 7032120-X (Version None)
Quarter: 2010Q4

REPORT INFORMATION
  Report Type: 
  Country: None (occurrence: None)
  Receive Date: 20101007
  Receipt Date: 20091118
  Transmission Date: 20110411
  Serious: Yes (Other)
  Sender: FDA-Public Use
  Company Number: IT-BRISTOL-MYERS SQUIBB COMPANY-14869630

PATIENT
  Age: 69 Year
  Sex: Male
  Weight: 75 kg

DRUGS (3)
  1. CETUXIMAB [Suspect]
     Indication: NON-SMALL CELL LUNG CANCER
     Dosage: RECENT INF-10NOV09; 5MG/ML INTERRUPTED ON 17NOV2009, RESTARTED ON 24NOV09
     Route: 042
     Dates: start: 20090623
  2. CISPLATIN [Suspect]
     Indication: NON-SMALL CELL LUNG CANCER
     Dosage: ON DAY 1 OF 21DAY CYCLE
     Route: 042
     Dates: start: 20090623, end: 20091103
  3. GEMCITABINE [Suspect]
     Indication: NON-SMALL CELL LUNG CANCER
     Dosage: ON DAY 1, 8 OF 21DAY CYCLE
     Route: 042
     Dates: start: 20090623, end: 20091110

REACTIONS (1)
  - THROMBOCYTOPENIA [None]
